FAERS Safety Report 25615354 (Version 1)
Quarter: 2025Q3

REPORT INFORMATION
  Report Type: Spontaneous
  Country: CA (occurrence: CA)
  Receive Date: 20250729
  Receipt Date: 20250729
  Transmission Date: 20251021
  Serious: Yes (Other)
  Sender: SANDOZ
  Company Number: CA-SANDOZ-SDZ2025CA053153

PATIENT
  Age: 58 Year
  Sex: Female
  Weight: 98 kg

DRUGS (8)
  1. METFORMIN [Suspect]
     Active Substance: METFORMIN HYDROCHLORIDE
     Indication: Diabetes mellitus
     Route: 065
  2. ORENCIA [Suspect]
     Active Substance: ABATACEPT
     Indication: Rheumatoid arthritis
     Dosage: 1000 MG, Q4W
     Route: 042
  3. ORENCIA [Suspect]
     Active Substance: ABATACEPT
     Dosage: 1000 MG, Q4W
     Route: 042
  4. ORENCIA [Suspect]
     Active Substance: ABATACEPT
     Dosage: 1000 MG, Q4W
     Route: 042
  5. ORENCIA [Suspect]
     Active Substance: ABATACEPT
     Dosage: 1000 MG, Q4W
     Route: 042
  6. ORENCIA [Suspect]
     Active Substance: ABATACEPT
     Dosage: 1000 MG, Q4W
     Route: 042
  7. ORENCIA [Suspect]
     Active Substance: ABATACEPT
     Dosage: 1000 MG, Q4W
     Route: 042
  8. ORENCIA [Suspect]
     Active Substance: ABATACEPT
     Dosage: 1000 MG, Q4W
     Route: 042

REACTIONS (12)
  - Blood pressure diastolic increased [Not Recovered/Not Resolved]
  - Blood pressure increased [Not Recovered/Not Resolved]
  - Blood pressure systolic increased [Not Recovered/Not Resolved]
  - Heart rate decreased [Not Recovered/Not Resolved]
  - Body temperature decreased [Not Recovered/Not Resolved]
  - Diabetes mellitus [Not Recovered/Not Resolved]
  - Ear infection [Not Recovered/Not Resolved]
  - General physical health deterioration [Not Recovered/Not Resolved]
  - Weight increased [Not Recovered/Not Resolved]
  - Oxygen saturation decreased [Not Recovered/Not Resolved]
  - Weight decreased [Not Recovered/Not Resolved]
  - Prescribed overdose [Not Recovered/Not Resolved]
